FAERS Safety Report 6063749-3 (Version None)
Quarter: 2009Q1

REPORT INFORMATION
  Report Type: 
  Country: None (occurrence: None)
  Receive Date: 20090204
  Receipt Date: 20090126
  Transmission Date: 20090719
  Serious: Yes (Disabling, Other)
  Sender: FDA-Public Use
  Company Number: GB-RANBAXY-2009RR-21051

PATIENT
  Age: 78 Year
  Sex: Male

DRUGS (4)
  1. ITRACONAZOLE [Suspect]
     Indication: ASPERGILLOMA
     Dosage: UNK
     Dates: start: 20051201
  2. SIMVASTATIN [Suspect]
     Indication: DRUG USE FOR UNKNOWN INDICATION
     Dosage: 40 MG, QD
     Route: 048
     Dates: start: 20051101
  3. WARFARIN SODIUM [Concomitant]
     Indication: PULMONARY EMBOLISM
  4. ZOLADEX [Concomitant]
     Indication: PROSTATE CANCER

REACTIONS (6)
  - ASPERGILLOMA [None]
  - DRUG INTERACTION [None]
  - MYALGIA [None]
  - MYOPATHY [None]
  - POLYNEUROPATHY [None]
  - UBIQUINONE DECREASED [None]
